FAERS Safety Report 25229028 (Version 1)
Quarter: 2025Q2

REPORT INFORMATION
  Report Type: Spontaneous
  Country: CA (occurrence: CA)
  Receive Date: 20250423
  Receipt Date: 20250423
  Transmission Date: 20250717
  Serious: Yes (Hospitalization)
  Sender: SANDOZ
  Company Number: CA-SANDOZ-SDZ2024CA038436

PATIENT
  Age: 94 Year
  Sex: Female
  Weight: 68 kg

DRUGS (3)
  1. ENOXAPARIN SODIUM [Suspect]
     Active Substance: ENOXAPARIN SODIUM
     Indication: Thrombosis
     Dosage: 30 MG, QD
     Route: 058
  2. ENOXAPARIN SODIUM [Suspect]
     Active Substance: ENOXAPARIN SODIUM
     Indication: Arteriovenous fistula
     Dosage: 40 MG, QD
     Route: 058
  3. HYDROCHLOROTHIAZIDE\TELMISARTAN [Suspect]
     Active Substance: HYDROCHLOROTHIAZIDE\TELMISARTAN
     Indication: Product used for unknown indication
     Route: 065

REACTIONS (5)
  - Abdominal wall haematoma [Recovering/Resolving]
  - Abdominal wall pain [Recovering/Resolving]
  - Hyponatraemia [Unknown]
  - Overdose [Recovering/Resolving]
  - Haemoglobin decreased [Recovering/Resolving]
